FAERS Safety Report 6474167-8 (Version None)
Quarter: 2009Q4

REPORT INFORMATION
  Report Type: 
  Country: None (occurrence: None)
  Receive Date: 20091204
  Receipt Date: 20091123
  Transmission Date: 20100525
  Serious: Yes (Hospitalization)
  Sender: FDA-Public Use
  Company Number: PHHY2009MX44127

PATIENT
  Age: 65 Year
  Sex: Female

DRUGS (5)
  1. ACLASTA [Suspect]
     Indication: OSTEOPOROSIS
     Dosage: 1 INJECTION PER YEAR
     Dates: start: 20080901
  2. ACLASTA [Suspect]
     Dosage: 1 INJECTION PER YEAR
     Dates: start: 20090907
  3. METFORMIN HCL [Concomitant]
  4. INSULIN [Concomitant]
  5. KETOROLAC TROMETHAMINE [Concomitant]

REACTIONS (2)
  - CYSTOCELE [None]
  - HYSTERECTOMY [None]
